FAERS Safety Report 22132607 (Version 2)
Quarter: 2023Q2

REPORT INFORMATION
  Report Type: Spontaneous
  Country: US (occurrence: US)
  Receive Date: 20230323
  Receipt Date: 20230404
  Transmission Date: 20230721
  Serious: Yes (Other)
  Sender: FDA-Public Use
  Company Number: US-TEVA-2023-US-2867583

PATIENT
  Sex: Male

DRUGS (11)
  1. CELECOXIB [Suspect]
     Active Substance: CELECOXIB
     Indication: Rhabdoid tumour of the kidney
     Dosage: 500 MG/M2 DAILY;
     Route: 048
  2. VALPROIC ACID [Suspect]
     Active Substance: VALPROIC ACID
     Indication: Rhabdoid tumour of the kidney
     Dosage: 15 MG/KG DAILY;
     Route: 065
  3. CARBOPLATIN [Suspect]
     Active Substance: CARBOPLATIN
     Indication: Rhabdoid tumour of the kidney
     Route: 065
  4. VINCRISTINE [Suspect]
     Active Substance: VINCRISTINE
     Indication: Rhabdoid tumour of the kidney
     Route: 065
  5. ETOPOSIDE [Suspect]
     Active Substance: ETOPOSIDE
     Indication: Rhabdoid tumour of the kidney
     Route: 065
  6. DOXORUBICIN [Suspect]
     Active Substance: DOXORUBICIN
     Indication: Rhabdoid tumour of the kidney
     Route: 065
  7. ETOPOSIDE [Suspect]
     Active Substance: ETOPOSIDE
     Indication: Rhabdoid tumour of the kidney
     Dosage: 37.5 MG/M2 DAILY; FROM DAYS 1-21
     Route: 048
  8. CYCLOPHOSPHAMIDE [Suspect]
     Active Substance: CYCLOPHOSPHAMIDE
     Indication: Rhabdoid tumour of the kidney
     Dosage: 50 MG/M2 DAILY; FROM DAYS 22-42
     Route: 048
  9. CYCLOPHOSPHAMIDE [Suspect]
     Active Substance: CYCLOPHOSPHAMIDE
     Route: 065
  10. BEVACIZUMAB [Suspect]
     Active Substance: BEVACIZUMAB
     Indication: Rhabdoid tumour of the kidney
     Dosage: EVERY 3 WEEKS
     Route: 065
  11. TEMOZOLOMIDE [Suspect]
     Active Substance: TEMOZOLOMIDE
     Indication: Rhabdoid tumour of the kidney
     Dosage: 60 MG/M2 DAILY; ON DAYS 1-21
     Route: 065

REACTIONS (2)
  - Myeloproliferative neoplasm [Not Recovered/Not Resolved]
  - Drug ineffective [Unknown]
